FAERS Safety Report 4628398-X (Version None)
Quarter: 2005Q2

REPORT INFORMATION
  Report Type: 
  Country: None (occurrence: None)
  Receive Date: 20050401
  Receipt Date: 20050322
  Transmission Date: 20051028
  Serious: No
  Sender: FDA-Public Use
  Company Number: 2005UW04537

PATIENT
  Age: 50 Year
  Sex: Male

DRUGS (3)
  1. SEROQUEL [Suspect]
  2. GEODON [Concomitant]
  3. WELLBUTRIN [Concomitant]

REACTIONS (1)
  - AGRANULOCYTOSIS [None]
